FAERS Safety Report 6915313-9 (Version None)
Quarter: 2010Q3

REPORT INFORMATION
  Report Type: 
  Country: None (occurrence: None)
  Receive Date: 20100809
  Receipt Date: 20091202
  Transmission Date: 20110219
  Serious: No
  Sender: FDA-Public Use
  Company Number: US-ABBOTT-09P-163-0612817-00

PATIENT
  Sex: Female
  Weight: 64.922 kg

DRUGS (5)
  1. DEPAKOTE ER [Suspect]
     Indication: BIPOLAR I DISORDER
     Dates: start: 20091104
  2. OLANZAPINE [Concomitant]
     Indication: BIPOLAR I DISORDER
  3. LEVOTHYROXINE [Concomitant]
     Indication: PRODUCT USED FOR UNKNOWN INDICATION
  4. TEMAZEPAM [Concomitant]
     Indication: SLEEP DISORDER THERAPY
  5. LITHIUM [Concomitant]
     Indication: PRODUCT USED FOR UNKNOWN INDICATION

REACTIONS (1)
  - PRURITUS GENERALISED [None]
